FAERS Safety Report 20333614 (Version 1)
Quarter: 2022Q1

REPORT INFORMATION
  Report Type: Report from Study
  Country: US (occurrence: US)
  Receive Date: 20220113
  Receipt Date: 20220113
  Transmission Date: 20220423
  Serious: Yes (Hospitalization, Other)
  Sender: FDA-Public Use
  Company Number: US-GILEAD-2022-0565024

PATIENT
  Age: 53 Year
  Sex: Female

DRUGS (4)
  1. AZTREONAM LYSINE [Suspect]
     Active Substance: AZTREONAM LYSINE
     Indication: Cystic fibrosis
     Dosage: 75 MG, TID 28 DAYS ON AND 28 DAYS OFF
     Route: 055
  2. FASENRA [Concomitant]
     Active Substance: BENRALIZUMAB
  3. PULMOZYME [Concomitant]
     Active Substance: DORNASE ALFA
  4. SYMDEKO [Concomitant]
     Active Substance: IVACAFTOR\TEZACAFTOR

REACTIONS (1)
  - Cystic fibrosis [Unknown]

NARRATIVE: CASE EVENT DATE: 20211222
